FAERS Safety Report 25847595 (Version 3)
Quarter: 2025Q4

REPORT INFORMATION
  Report Type: Spontaneous
  Country: US (occurrence: US)
  Receive Date: 20250925
  Receipt Date: 20251107
  Transmission Date: 20260118
  Serious: No
  Sender: PFIZER
  Company Number: US-PFIZER INC-202500188839

PATIENT
  Age: 70 Year
  Sex: Female
  Weight: 92.08 kg

DRUGS (25)
  1. GENOTROPIN [Suspect]
     Active Substance: SOMATROPIN
     Indication: Hypothalamo-pituitary disorder
     Dosage: 0.2 MG, 1X/DAY
  2. GENOTROPIN [Suspect]
     Active Substance: SOMATROPIN
     Dosage: 1 MG, DAILY (7 DAYS PER WEEK)
     Route: 058
  3. ROSUVASTATIN [Concomitant]
     Active Substance: ROSUVASTATIN
     Indication: Atrial fibrillation
     Dosage: 20 MG, AT NIGHT
  4. LOSARTAN [Concomitant]
     Active Substance: LOSARTAN
     Indication: Cardiac disorder
     Dosage: 12 MG, 2X/DAY (IN A DAY AND AT NIGHT)
  5. LOSARTAN [Concomitant]
     Active Substance: LOSARTAN
     Indication: Blood pressure management
  6. FUROSEMIDE [Concomitant]
     Active Substance: FUROSEMIDE
     Indication: Fluid retention
     Dosage: 25 MG, 1X/DAY
  7. LEVOTHYROXINE [Concomitant]
     Active Substance: LEVOTHYROXINE
     Indication: Thyroid disorder
     Dosage: 125 UG, 1X/DAY
  8. POTASSIUM CHLORIDE SR ST [Concomitant]
     Indication: Vitamin supplementation
     Dosage: 20 MG, 2X/DAY
  9. CYANOCOBALAMIN [Concomitant]
     Active Substance: CYANOCOBALAMIN
     Indication: Hypothalamo-pituitary disorder
     Dosage: 1 ML, ONCE A MONTH
  10. ELIQUIS [Concomitant]
     Active Substance: APIXABAN
     Indication: Cardiac disorder
     Dosage: 5 MG, 2X/DAY
  11. PEPCID [Concomitant]
     Active Substance: FAMOTIDINE
     Indication: Gastrointestinal disorder
     Dosage: 20 MG
  12. DOCUSATE SODIUM [Concomitant]
     Active Substance: DOCUSATE SODIUM
     Indication: Gastrointestinal disorder
     Dosage: 100 MG, 2X/DAY
  13. EZETIMIBE [Concomitant]
     Active Substance: EZETIMIBE
     Dosage: 10 MG, 1X/DAY (AT NIGHT)
  14. HYDROCORTISONE [Concomitant]
     Active Substance: HYDROCORTISONE
     Indication: Illness
     Dosage: 10 MG, 1X/DAY, AS NEEDED
  15. ISOSORBIDE MONONITRATE [Concomitant]
     Active Substance: ISOSORBIDE MONONITRATE
     Indication: Cardiac disorder
     Dosage: 30 MG, 2X/DAY
  16. LORATADINE [Concomitant]
     Active Substance: LORATADINE
     Indication: Nasal disorder
     Dosage: 10 MG
  17. AMITIZA [Concomitant]
     Active Substance: LUBIPROSTONE
     Indication: Gastrointestinal disorder
     Dosage: UNK, 2X/DAY
  18. MECLIZINE [Concomitant]
     Active Substance: MECLIZINE HYDROCHLORIDE
     Indication: Dizziness
     Dosage: 25 MG
  19. NITROGLYCERIN [Concomitant]
     Active Substance: NITROGLYCERIN
     Indication: Cardiac disorder
     Dosage: 1 DF (0.4 (UNIT UNKNOWN) EVERY 5 MINUTES ONLY, TWICE AND CALL FOR AMBULANCE
  20. ONDANSETRON [Concomitant]
     Active Substance: ONDANSETRON
     Indication: Dyspepsia
     Dosage: 4 MG
  21. ZONISAMIDE [Concomitant]
     Active Substance: ZONISAMIDE
     Indication: Tremor
     Dosage: 50 MG, 1X/DAY (AT NIGHT)
  22. PANTOPRAZOLE SODIUM [Concomitant]
     Active Substance: PANTOPRAZOLE SODIUM
     Indication: Gastrointestinal disorder
     Dosage: 40 MG, 2X/DAY
  23. COLACE [Concomitant]
     Active Substance: DOCUSATE SODIUM
     Indication: Gastrointestinal disorder
     Dosage: 8.5 MG, 2X/DAY
  24. CARAFATE [Concomitant]
     Active Substance: SUCRALFATE
     Indication: Gastrointestinal disorder
     Dosage: UNK, 4X/DAY
  25. OMEPRAZOLE [Concomitant]
     Active Substance: OMEPRAZOLE
     Dosage: 20 MG, 1X/DAY (IN THE MORNING)

REACTIONS (2)
  - Device mechanical issue [Unknown]
  - Device delivery system issue [Unknown]
